FAERS Safety Report 9036845 (Version 1)
Quarter: 2012Q4

REPORT INFORMATION
  Report Type: Spontaneous
  Country: CA (occurrence: None)
  Receive Date: 20121206
  Receipt Date: 20121206
  Transmission Date: 20130627
  Serious: No
  Sender: FDA-Public Use
  Company Number: AECAN201200182

PATIENT
  Sex: Male

DRUGS (2)
  1. HYPERHEP B (HEPATITIS B IMMUNE GLOBULIN (HUMAN) ) [Suspect]
     Indication: HEPATITIS PROPHYLAXIS
     Route: 030
     Dates: start: 20120322, end: 20120322
  2. ANTIVIRALS NOS (NO PREF. NAME) [Suspect]
     Indication: PROPHYLAXIS AGAINST HIV INFECTION
     Dates: start: 20120322, end: 20120322

REACTIONS (2)
  - Injury associated with device [None]
  - Urticaria [None]
